FAERS Safety Report 4511283-1 (Version None)
Quarter: 2004Q4

REPORT INFORMATION
  Report Type: 
  Country: None (occurrence: None)
  Receive Date: 20041123
  Receipt Date: 20041123
  Transmission Date: 20050328
  Serious: Yes (Hospitalization)
  Sender: FDA-Public Use
  Company Number: None

PATIENT
  Age: 60 Year
  Sex: Female
  Weight: 72 kg

DRUGS (1)
  1. MOEXIPRIL HCL [Suspect]
     Indication: HEPATIC STEATOSIS
     Dosage: 1/D  PO ORAL
     Route: 048
     Dates: start: 20040621, end: 20041122

REACTIONS (2)
  - HOSPITALISATION [None]
  - PORTAL SHUNT [None]
